FAERS Safety Report 5888394-1 (Version None)
Quarter: 2008Q3

REPORT INFORMATION
  Report Type: 
  Country: None (occurrence: None)
  Receive Date: 20080916
  Receipt Date: 20080916
  Transmission Date: 20090109
  Serious: Yes (Life-Threatening, Other)
  Sender: FDA-Public Use
  Company Number: None

PATIENT
  Age: 68 Year
  Sex: Female
  Weight: 61.2356 kg

DRUGS (1)
  1. AVELOX [Suspect]
     Indication: UPPER RESPIRATORY TRACT INFECTION
     Dosage: 400 MG. 1 X PER DAY PO
     Route: 048
     Dates: start: 20080726, end: 20080726

REACTIONS (8)
  - ERYTHEMA [None]
  - EYE SWELLING [None]
  - IMPAIRED DRIVING ABILITY [None]
  - NASAL DISORDER [None]
  - OCULAR HYPERAEMIA [None]
  - PRURITUS [None]
  - RASH [None]
  - SWELLING [None]
